FAERS Safety Report 20804297 (Version 1)
Quarter: 2022Q2

REPORT INFORMATION
  Report Type: Spontaneous
  Country: IL (occurrence: None)
  Receive Date: 20220509
  Receipt Date: 20220509
  Transmission Date: 20220721
  Serious: Yes (Hospitalization)
  Sender: FDA-Public Use
  Company Number: None

PATIENT
  Age: 62 Year
  Sex: Female

DRUGS (12)
  1. ASPIRIN [Suspect]
     Active Substance: ASPIRIN
  2. ALPHA LIPOIC ACID [Concomitant]
     Active Substance: .ALPHA.-LIPOIC ACID
  3. BEZAFIBRATE [Concomitant]
     Active Substance: BEZAFIBRATE
  4. DULOXETINE [Concomitant]
     Active Substance: DULOXETINE
  5. EMPAGLIFLOZIN\METFORMIN HYDROCHLORIDE [Concomitant]
     Active Substance: EMPAGLIFLOZIN\METFORMIN HYDROCHLORIDE
  6. LIPITOR [Concomitant]
     Active Substance: ATORVASTATIN CALCIUM
  7. NEXIUM [Suspect]
     Active Substance: ESOMEPRAZOLE MAGNESIUM
  8. ATENOLOL [Concomitant]
     Active Substance: ATENOLOL
  9. INSULIN GLARGINE\LIXISENATIDE [Concomitant]
     Active Substance: INSULIN GLARGINE\LIXISENATIDE
  10. TOVIAZ [Concomitant]
     Active Substance: FESOTERODINE FUMARATE
  11. VALSARTAN [Concomitant]
     Active Substance: VALSARTAN
  12. METFORMIN HYDROCHLORIDE [Concomitant]
     Active Substance: METFORMIN HYDROCHLORIDE

REACTIONS (2)
  - Upper gastrointestinal haemorrhage [Unknown]
  - Drug ineffective [Unknown]
